FAERS Safety Report 6191148-2 (Version None)
Quarter: 2009Q2

REPORT INFORMATION
  Report Type: 
  Country: None (occurrence: None)
  Receive Date: 20090513
  Receipt Date: 20090513
  Transmission Date: 20091009
  Serious: Yes (Disabling)
  Sender: FDA-Public Use
  Company Number: None

PATIENT
  Sex: Female

DRUGS (2)
  1. LEVAQUIN [Suspect]
     Dosage: 750MG ONCE PO QD PO
     Route: 048
     Dates: start: 20090130
  2. HUMALOG [Concomitant]

REACTIONS (2)
  - EPICONDYLITIS [None]
  - TENOSYNOVITIS [None]
